FAERS Safety Report 7435213-8 (Version None)
Quarter: 2011Q2

REPORT INFORMATION
  Report Type: 
  Country: None (occurrence: None)
  Receive Date: 20110418
  Receipt Date: 20110404
  Transmission Date: 20111010
  Serious: Yes (Death, Other)
  Sender: FDA-Public Use
  Company Number: GB-ACCORD-008589

PATIENT
  Age: 81 Year
  Sex: Male

DRUGS (8)
  1. SIMVASTATIN [Suspect]
     Indication: BLOOD CHOLESTEROL INCREASED
     Dosage: 40.00-MG- / ORAL
     Route: 048
     Dates: start: 20080714, end: 20080814
  2. FLOXACILLIN SODIUM [Concomitant]
  3. LACIDIPINE(LACIDIPINE) [Concomitant]
  4. SODIUM FUSIDAT(SODIUM FUSIDAT) [Suspect]
     Indication: DIABETIC FOOT
     Dosage: ORAL
     Route: 048
     Dates: end: 20080814
  5. RAMIPRIL [Concomitant]
  6. METFORIN(METFORMIN) [Concomitant]
  7. GLICLAZIDE(GLICLAZIDE) [Concomitant]
  8. ASPIRIN [Concomitant]

REACTIONS (5)
  - RENAL FAILURE ACUTE [None]
  - ABASIA [None]
  - RHABDOMYOLYSIS [None]
  - DRUG INTERACTION [None]
  - MALAISE [None]
